FAERS Safety Report 12922848 (Version 4)
Quarter: 2017Q4

REPORT INFORMATION
  Report Type: Report from Study
  Country: ES (occurrence: ES)
  Receive Date: 20161109
  Receipt Date: 20171101
  Transmission Date: 20180320
  Serious: Yes (Hospitalization)
  Sender: FDA-Public Use
  Company Number: ES-ROCHE-1850701

PATIENT
  Age: 61 Year
  Sex: Female
  Weight: 58.6 kg

DRUGS (2)
  1. PACLITAXEL. [Suspect]
     Active Substance: PACLITAXEL
     Indication: BREAST CANCER
     Dosage: FORM STRENGTH : 6 MG/ML
     Route: 042
     Dates: start: 20161020
  2. BEVACIZUMAB. [Suspect]
     Active Substance: BEVACIZUMAB
     Indication: BREAST CANCER
     Dosage: FORM STRENGTH: 25 MG/ML
     Route: 042
     Dates: start: 20161019

REACTIONS (5)
  - Neutropenia [Recovering/Resolving]
  - Odynophagia [Recovered/Resolved]
  - Dyspnoea [Recovered/Resolved]
  - Epistaxis [Recovered/Resolved]
  - Mucosal inflammation [Recovered/Resolved]

NARRATIVE: CASE EVENT DATE: 20161019
